FAERS Safety Report 6675267-X (Version None)
Quarter: 2010Q2

REPORT INFORMATION
  Report Type: 
  Country: None (occurrence: None)
  Receive Date: 20100409
  Receipt Date: 20091222
  Transmission Date: 20101027
  Serious: No
  Sender: FDA-Public Use
  Company Number: A0836441A

PATIENT
  Age: 41 Year
  Sex: Female

DRUGS (3)
  1. TYKERB [Suspect]
     Indication: BREAST CANCER
     Dosage: 250MG FIVE TIMES PER DAY
     Route: 048
     Dates: start: 20091217
  2. COREG [Concomitant]
  3. ESKALITH [Concomitant]

REACTIONS (1)
  - DYSGEUSIA [None]
